FAERS Safety Report 5599407-9 (Version None)
Quarter: 2008Q1

REPORT INFORMATION
  Report Type: 
  Country: None (occurrence: None)
  Receive Date: 20080122
  Receipt Date: 20080110
  Transmission Date: 20080703
  Serious: Yes (Hospitalization)
  Sender: FDA-Public Use
  Company Number: GB-PFIZER INC-2007099929

PATIENT
  Sex: Female
  Weight: 70.8 kg

DRUGS (25)
  1. NEURONTIN [Suspect]
     Indication: NEURALGIA
     Route: 048
     Dates: start: 20040907, end: 20071213
  2. SERTRALINE [Concomitant]
     Indication: DEPRESSION
     Route: 048
     Dates: start: 20050701, end: 20060110
  3. HORMONIN [Concomitant]
     Route: 048
  4. MIRTAZAPINE [Concomitant]
     Indication: DEPRESSION
     Route: 048
     Dates: start: 20060110, end: 20060331
  5. MIRTAZAPINE [Concomitant]
     Dates: start: 20060505, end: 20070705
  6. QUETIAPINE [Concomitant]
     Indication: PARANOIA
     Route: 048
     Dates: start: 20060216, end: 20060624
  7. QUETIAPINE [Concomitant]
     Indication: DEPRESSION
  8. DULOXETINE [Concomitant]
     Indication: DEPRESSION
     Route: 048
     Dates: start: 20060331, end: 20060505
  9. AMISULPRIDE [Concomitant]
     Indication: PSYCHOTIC DISORDER
     Route: 048
     Dates: start: 20060624, end: 20060701
  10. ARIPIPRAZOLE [Concomitant]
     Indication: PSYCHOTIC DISORDER
     Dosage: DAILY DOSE:30MG
     Route: 048
     Dates: start: 20060728, end: 20070720
  11. LITHIUM CARBONATE [Concomitant]
     Route: 048
     Dates: start: 20060906, end: 20071220
  12. VENLAFAXINE HCL [Concomitant]
     Indication: DEPRESSION
     Dosage: DAILY DOSE:300MG
     Route: 048
     Dates: start: 20070105
  13. RISPERIDONE [Concomitant]
     Indication: PSYCHOTIC DISORDER
     Route: 048
     Dates: start: 20070620, end: 20070814
  14. CLOZAPINE [Concomitant]
     Indication: PSYCHOTIC DISORDER
     Route: 048
     Dates: start: 20070814
  15. PREDNISOLONE [Concomitant]
     Route: 048
  16. METHOTREXATE [Concomitant]
     Route: 058
     Dates: end: 20071001
  17. MESALAMINE [Concomitant]
     Route: 048
     Dates: end: 20071201
  18. MESALAMINE [Concomitant]
     Route: 054
     Dates: end: 20071201
  19. IMURAN [Concomitant]
     Indication: GASTROINTESTINAL DISORDER
  20. DICLOFENAC [Concomitant]
  21. CELEBREX [Concomitant]
  22. IBUPROFEN [Concomitant]
     Indication: ARTHRALGIA
     Route: 048
  23. IBUPROFEN [Concomitant]
     Route: 061
  24. ADCAL-D3 [Concomitant]
  25. ACTONEL [Concomitant]

REACTIONS (6)
  - CONDITION AGGRAVATED [None]
  - DEPRESSED MOOD [None]
  - HOMICIDAL IDEATION [None]
  - HOSTILITY [None]
  - PSYCHOTIC DISORDER [None]
  - SUICIDAL IDEATION [None]
